FAERS Safety Report 18264777 (Version 1)
Quarter: 2020Q3

REPORT INFORMATION
  Report Type: Report from Study
  Country: None (occurrence: CN)
  Receive Date: 20200915
  Receipt Date: 20200915
  Transmission Date: 20201103
  Serious: Yes (Other)
  Sender: FDA-Public Use
  Company Number: CN-ABBVIE-20K-035-3554385-00

PATIENT
  Age: 17 Year
  Sex: Female

DRUGS (3)
  1. IBRUTINIB [Suspect]
     Active Substance: IBRUTINIB
     Indication: AUTOIMMUNE HAEMOLYTIC ANAEMIA
     Route: 048
  2. IBRUTINIB [Suspect]
     Active Substance: IBRUTINIB
     Route: 048
     Dates: start: 20191030
  3. IBRUTINIB [Suspect]
     Active Substance: IBRUTINIB
     Route: 048

REACTIONS (8)
  - Off label use [Unknown]
  - Haematotoxicity [Unknown]
  - Therapeutic product effect incomplete [Unknown]
  - Neutropenia [Recovered/Resolved]
  - Toxicity to various agents [Unknown]
  - Haemolysis [Unknown]
  - Lymphocytosis [Recovered/Resolved]
  - Hyperuricaemia [Recovered/Resolved]
